FAERS Safety Report 8596608-2 (Version None)
Quarter: 2012Q3

REPORT INFORMATION
  Report Type: 
  Country: None (occurrence: None)
  Receive Date: 20120815
  Receipt Date: 20120808
  Transmission Date: 20120928
  Serious: Yes (Hospitalization, Other)
  Sender: FDA-Public Use
  Company Number: US-US-EMD SERONO, INC.-7153692

PATIENT
  Sex: Female

DRUGS (5)
  1. TRILEPTAL [Concomitant]
     Indication: CONVULSION
  2. LIPITOR [Concomitant]
     Indication: BLOOD CHOLESTEROL INCREASED
  3. METOPROLOL TARTRATE [Concomitant]
     Indication: HYPERTENSION
  4. INTERFERON BETA-1A [Suspect]
     Indication: MULTIPLE SCLEROSIS
     Route: 058
     Dates: start: 20020808
  5. BENTYL [Concomitant]
     Indication: PRODUCT USED FOR UNKNOWN INDICATION

REACTIONS (8)
  - TREMOR [None]
  - VOMITING [None]
  - RHEUMATOID ARTHRITIS [None]
  - DYSARTHRIA [None]
  - EYE DISORDER [None]
  - HEADACHE [None]
  - CONVULSION [None]
  - FIBROMYALGIA [None]
